FAERS Safety Report 14715599 (Version 1)
Quarter: 2018Q2

REPORT INFORMATION
  Report Type: Report from Study
  Country: US (occurrence: US)
  Receive Date: 20180404
  Receipt Date: 20180404
  Transmission Date: 20180711
  Serious: Yes (Hospitalization, Other)
  Sender: FDA-Public Use
  Company Number: US-ALEXION PHARMACEUTICALS INC.-A201803814

PATIENT
  Sex: Female

DRUGS (1)
  1. SOLIRIS [Suspect]
     Active Substance: ECULIZUMAB
     Indication: ATYPICAL HAEMOLYTIC URAEMIC SYNDROME
     Route: 065

REACTIONS (6)
  - Platelet count decreased [Unknown]
  - Nausea [Unknown]
  - Urine albumin/creatinine ratio increased [Unknown]
  - Vomiting [Unknown]
  - Peritonitis [Unknown]
  - Diarrhoea [Unknown]
